FAERS Safety Report 19035282 (Version 2)
Quarter: 2022Q4

REPORT INFORMATION
  Report Type: Report from Study
  Country: US (occurrence: US)
  Receive Date: 20210320
  Receipt Date: 20221230
  Transmission Date: 20230112
  Serious: No
  Sender: FDA-Public Use
  Company Number: US-ACORDA-ACO_168076_2021

PATIENT
  Sex: Male

DRUGS (2)
  1. INBRIJA [Suspect]
     Active Substance: LEVODOPA
     Indication: On and off phenomenon
     Dosage: 84 MILLIGRAM, AS NEEDED, NOT TO EXCEED 5 DOSES PER DAY
     Dates: start: 20220602
  2. INBRIJA [Suspect]
     Active Substance: LEVODOPA
     Indication: Parkinson^s disease

REACTIONS (3)
  - Drug ineffective [Unknown]
  - Inappropriate schedule of product administration [Unknown]
  - Therapy cessation [Unknown]
